FAERS Safety Report 6062352-9 (Version None)
Quarter: 2009Q1

REPORT INFORMATION
  Report Type: 
  Country: None (occurrence: None)
  Receive Date: 20090203
  Receipt Date: 20090121
  Transmission Date: 20090719
  Serious: Yes (Death, Hospitalization)
  Sender: FDA-Public Use
  Company Number: US-JNJFOC-20090107076

PATIENT
  Sex: Male
  Weight: 39.01 kg

DRUGS (7)
  1. FENTANYL-75 [Suspect]
     Indication: DRUG USE FOR UNKNOWN INDICATION
     Route: 065
  2. BENZODIAZEPINES [Concomitant]
  3. MORPHINE [Concomitant]
  4. CODEINE [Concomitant]
  5. DIPHENHYDRAMINE HCL [Concomitant]
  6. DIAZEPAM [Concomitant]
  7. OPIATES [Concomitant]

REACTIONS (5)
  - CHRONIC OBSTRUCTIVE PULMONARY DISEASE [None]
  - COLON CANCER METASTATIC [None]
  - DRUG LEVEL INCREASED [None]
  - PNEUMONIA [None]
  - SEPSIS [None]
